FAERS Safety Report 9188853 (Version 2)
Quarter: 2013Q2

REPORT INFORMATION
  Report Type: Spontaneous
  Country: US (occurrence: US)
  Receive Date: 20130326
  Receipt Date: 20130522
  Transmission Date: 20140414
  Serious: Yes (Other)
  Sender: FDA-Public Use
  Company Number: US-PFIZER INC-2013093156

PATIENT
  Age: 36 Year
  Sex: Male

DRUGS (1)
  1. CHANTIX [Suspect]
     Indication: SMOKING CESSATION THERAPY
     Dosage: STARTING PACK 0.5MG AND MONTH PACK 1 MG
     Dates: start: 20080516, end: 20080612

REACTIONS (1)
  - Suicidal ideation [Unknown]
